FAERS Safety Report 22134498 (Version 1)
Quarter: 2023Q1

REPORT INFORMATION
  Report Type: Report from Study
  Country: US (occurrence: US)
  Receive Date: 20230324
  Receipt Date: 20230324
  Transmission Date: 20230417
  Serious: Yes (Other)
  Sender: FDA-Public Use
  Company Number: US-ABBVIE-4701188

PATIENT
  Sex: Male

DRUGS (1)
  1. VENCLEXTA [Suspect]
     Active Substance: VENETOCLAX
     Indication: Acute myeloid leukaemia
     Route: 048
     Dates: start: 20220706

REACTIONS (5)
  - Spinal cord injury [Unknown]
  - Neoplasm malignant [Unknown]
  - Arthropathy [Unknown]
  - Type 1 diabetes mellitus [Unknown]
  - Coeliac disease [Unknown]
